FAERS Safety Report 23878096 (Version 2)
Quarter: 2024Q2

REPORT INFORMATION
  Report Type: Spontaneous
  Country: TW (occurrence: TW)
  Receive Date: 20240521
  Receipt Date: 20240607
  Transmission Date: 20240716
  Serious: Yes (Death, Hospitalization, Other)
  Sender: FDA-Public Use
  Company Number: TW-Accord-424687

PATIENT
  Age: 53 Year
  Sex: Male
  Weight: 47.8 kg

DRUGS (24)
  1. CARBOPLATIN [Suspect]
     Active Substance: CARBOPLATIN
     Indication: Squamous cell carcinoma of head and neck
     Dosage: 5 AUC, 1Q3W;
     Route: 042
     Dates: start: 20231127, end: 20231218
  2. FLUOROURACIL [Suspect]
     Active Substance: FLUOROURACIL
     Indication: Squamous cell carcinoma of head and neck
     Dosage: QD
     Route: 042
     Dates: start: 20231127, end: 20231201
  3. PEMBROLIZUMAB [Suspect]
     Active Substance: PEMBROLIZUMAB
     Indication: Squamous cell carcinoma of head and neck
     Dosage: 1Q3W
     Route: 042
     Dates: start: 20231127, end: 20240423
  4. LORAZEPAM [Concomitant]
     Active Substance: LORAZEPAM
     Dates: start: 20231113
  5. ESTAZOLAM [Concomitant]
     Active Substance: ESTAZOLAM
     Dates: start: 20231113
  6. ACETAMINOPHEN [Concomitant]
     Active Substance: ACETAMINOPHEN
     Dates: start: 20240222
  7. SERTRALINE [Concomitant]
     Active Substance: SERTRALINE HYDROCHLORIDE
     Dates: start: 20240319
  8. CEFIXIM [Concomitant]
     Active Substance: CEFIXIME
     Dates: start: 20240408
  9. FILGRASTIM [Concomitant]
     Active Substance: FILGRASTIM
     Dates: start: 20240415, end: 20240415
  10. BENZONATATE [Concomitant]
     Active Substance: BENZONATATE
     Dates: start: 20240408, end: 20240408
  11. ARIPIPRAZOLE [Concomitant]
     Active Substance: ARIPIPRAZOLE
     Dates: start: 20240403
  12. ACETYLCYSTEINE [Concomitant]
     Active Substance: ACETYLCYSTEINE
     Dates: start: 20240415
  13. ESOMEPRAZOLE [Concomitant]
     Active Substance: ESOMEPRAZOLE
     Dates: start: 20240401, end: 20240415
  14. POVIDONE-IODINE [Concomitant]
     Active Substance: POVIDONE-IODINE
     Dosage: 1 PERCENT
     Dates: start: 20240415
  15. DEXAMETHASONE PHOSPHATE [Concomitant]
     Active Substance: DEXAMETHASONE PHOSPHATE
     Dates: start: 20240423, end: 20240423
  16. SPERSIN [Concomitant]
     Dates: start: 20240511, end: 20240511
  17. CIPROFLOXACIN [Concomitant]
     Active Substance: CIPROFLOXACIN
     Dates: start: 20240511
  18. TEICOPLANIN [Concomitant]
     Active Substance: TEICOPLANIN
     Dates: start: 20240511
  19. ANIDULAFUNGIN [Concomitant]
     Active Substance: ANIDULAFUNGIN
  20. CARBOPLATIN [Suspect]
     Active Substance: CARBOPLATIN
     Indication: Squamous cell carcinoma of head and neck
     Dosage: 5 AUC, 1Q3W
     Route: 042
     Dates: start: 20240129, end: 20240129
  21. CARBOPLATIN [Suspect]
     Active Substance: CARBOPLATIN
     Indication: Squamous cell carcinoma of head and neck
     Dosage: 4 AUC, 1Q3W
     Route: 042
     Dates: start: 20240423, end: 20240423
  22. FLUOROURACIL [Suspect]
     Active Substance: FLUOROURACIL
     Indication: Squamous cell carcinoma of head and neck
     Dosage: QD
     Route: 042
     Dates: start: 20231218, end: 20231222
  23. FLUOROURACIL [Suspect]
     Active Substance: FLUOROURACIL
     Indication: Squamous cell carcinoma of head and neck
     Dosage: QD
     Route: 042
     Dates: start: 20240129, end: 20240202
  24. FLUOROURACIL [Suspect]
     Active Substance: FLUOROURACIL
     Indication: Squamous cell carcinoma of head and neck
     Dosage: QD
     Route: 042
     Dates: start: 20240423, end: 20240427

REACTIONS (3)
  - Pancytopenia [Not Recovered/Not Resolved]
  - Sepsis [Fatal]
  - Wound [Unknown]

NARRATIVE: CASE EVENT DATE: 20240506
